FAERS Safety Report 8670441 (Version 2)
Quarter: 2012Q4

REPORT INFORMATION
  Report Type: 
  Country: US (occurrence: US)
  Receive Date: 20120718
  Receipt Date: 20121001
  Transmission Date: 20130627
  Serious: Yes (Death)
  Sender: FDA-Public Use
  Company Number: US-ROCHE-1087505

PATIENT
  Sex: Female

DRUGS (8)
  1. LUCENTIS [Suspect]
     Indication: AGE-RELATED MACULAR DEGENERATION
     Route: 050
     Dates: start: 20070619, end: 20071016
  2. AVASTIN [Suspect]
     Indication: AGE-RELATED MACULAR DEGENERATION
     Route: 050
     Dates: start: 20060829, end: 20071127
  3. LOVASTATIN [Concomitant]
  4. LOXAPINE [Concomitant]
  5. LEVOXIN [Concomitant]
  6. CARVEDILOL [Concomitant]
  7. HUMULIN [Concomitant]
  8. LOPERAMIDE [Concomitant]

REACTIONS (1)
  - Death [Fatal]
